FAERS Safety Report 7594431-9 (Version None)
Quarter: 2011Q3

REPORT INFORMATION
  Report Type: 
  Country: None (occurrence: None)
  Receive Date: 20110707
  Receipt Date: 20110705
  Transmission Date: 20111222
  Serious: Yes (Hospitalization)
  Sender: FDA-Public Use
  Company Number: JP-BRISTOL-MYERS SQUIBB COMPANY-15876519

PATIENT

DRUGS (1)
  1. PACLITAXEL [Suspect]
     Indication: GASTRIC CANCER
     Dosage: DAY 1,8,15
     Route: 042
     Dates: start: 20110126

REACTIONS (1)
  - DEPRESSED LEVEL OF CONSCIOUSNESS [None]
